FAERS Safety Report 7198962-5 (Version None)
Quarter: 2010Q4

REPORT INFORMATION
  Report Type: 
  Country: None (occurrence: None)
  Receive Date: 20101228
  Receipt Date: 20101221
  Transmission Date: 20110411
  Serious: Yes (Hospitalization)
  Sender: FDA-Public Use
  Company Number: DE-BIOGENIDEC-2010BI010819

PATIENT
  Age: 25 Year
  Sex: Male

DRUGS (2)
  1. TYSABRI [Suspect]
     Indication: RELAPSING-REMITTING MULTIPLE SCLEROSIS
     Route: 042
     Dates: start: 20060901, end: 20100201
  2. CORTISONE [Concomitant]
     Indication: RELAPSING-REMITTING MULTIPLE SCLEROSIS

REACTIONS (1)
  - MYELODYSPLASTIC SYNDROME [None]
